FAERS Safety Report 15566832 (Version 1)
Quarter: 2018Q4

REPORT INFORMATION
  Report Type: Spontaneous
  Country: US (occurrence: US)
  Receive Date: 20181030
  Receipt Date: 20181030
  Transmission Date: 20190205
  Serious: Yes (Other)
  Sender: FDA-Public Use
  Company Number: US-009507513-1810USA010037

PATIENT
  Sex: Female
  Weight: 108.84 kg

DRUGS (2)
  1. IMPLANON [Suspect]
     Active Substance: ETONOGESTREL
     Indication: CONTRACEPTION
     Dosage: 1 DOSAGE FORM
     Route: 059
     Dates: start: 20100519
  2. LO/OVRAL [Suspect]
     Active Substance: ETHINYL ESTRADIOL\NORGESTREL
     Indication: CONTRACEPTION
     Dosage: 0.3 MG-30 MCG/ONE TABLET BY MOUTH DAILY
     Route: 048
     Dates: start: 20100505, end: 20100708

REACTIONS (7)
  - Chlamydial cervicitis [Unknown]
  - Incorrect product administration duration [Not Recovered/Not Resolved]
  - Vaginitis chlamydial [Unknown]
  - Amenorrhoea [Unknown]
  - Pruritus [Unknown]
  - Medication error [Unknown]
  - Bacterial vaginosis [Unknown]

NARRATIVE: CASE EVENT DATE: 201005
